FAERS Safety Report 7599624-2 (Version None)
Quarter: 2011Q3

REPORT INFORMATION
  Report Type: 
  Country: None (occurrence: None)
  Receive Date: 20110711
  Receipt Date: 20110707
  Transmission Date: 20111222
  Serious: Yes (Hospitalization)
  Sender: FDA-Public Use
  Company Number: DE-SHIRE-CQT2-2011-00003

PATIENT
  Sex: Female

DRUGS (19)
  1. ANAGRELIDE HCL [Suspect]
     Dosage: 0.5 MG, 1X/DAY:QD
     Route: 048
     Dates: start: 20070322, end: 20070409
  2. ANAGRELIDE HCL [Suspect]
     Dosage: 0.5 MG FIVE TIMES DAILY
     Route: 048
     Dates: start: 20071122, end: 20080116
  3. ANAGRELIDE HCL [Suspect]
     Dosage: 3.0 G, 1X/DAY:QD
     Route: 048
     Dates: start: 20110117
  4. ANAGRELIDE HCL [Suspect]
     Dosage: 0.5 MG, 3X/DAY:TID
     Route: 048
     Dates: start: 20070410, end: 20070701
  5. HYDROXYUREA [Suspect]
     Indication: ESSENTIAL THROMBOCYTHAEMIA
     Dosage: 500 MG, 2X/DAY:BID
     Route: 048
     Dates: start: 20080117, end: 20080123
  6. ARCOXIA [Concomitant]
     Indication: PSORIATIC ARTHROPATHY
     Dosage: 90 MG, 1X/DAY:QD
     Route: 048
     Dates: start: 20060101
  7. METHOTREXATE [Concomitant]
     Indication: PSORIATIC ARTHROPATHY
     Dosage: 20 MG, 1X/WEEK
     Route: 042
     Dates: start: 20060101
  8. ANAGRELIDE HCL [Suspect]
     Dosage: 0.5 MG FIVE TIMES DAILY
     Route: 048
     Dates: start: 20080124, end: 20101027
  9. AMITRIPTYLINE HCL [Concomitant]
     Indication: DEPRESSION
     Dosage: 50 MG, 1X/DAY:QD
     Route: 048
     Dates: start: 20060101
  10. ANAGRELIDE HCL [Suspect]
     Dosage: 0.75 MG DAILY ALTERNATING WITH 1 MG DAILY
     Route: 048
     Dates: start: 20070702, end: 20070923
  11. ANAGRELIDE HCL [Suspect]
     Dosage: 0.5 MG, 4X/DAY:QID
     Route: 048
     Dates: start: 20070924, end: 20071121
  12. PREDNISONE [Concomitant]
     Indication: PSORIATIC ARTHROPATHY
     Dosage: 5 MG, 1X/DAY:QD
     Route: 048
     Dates: start: 20060101
  13. TILIDIN [Concomitant]
     Indication: PSORIATIC ARTHROPATHY
     Dosage: 20 GTT, 3X/DAY:TID
     Route: 048
     Dates: start: 20070227
  14. OMEPRAZOL                          /00661203/ [Concomitant]
     Indication: PROPHYLAXIS AGAINST GASTROINTESTINAL ULCER
     Dosage: 90 MG, 1X/DAY:QD
     Route: 048
     Dates: start: 20060101
  15. MARCUMAR [Concomitant]
     Indication: PULMONARY EMBOLISM
     Dosage: 50 MG, 1X/DAY:QD
     Route: 048
     Dates: start: 20100301
  16. MARCUMAR [Concomitant]
     Dosage: 50 MG, 1X/DAY:QD
     Route: 048
     Dates: start: 20060101, end: 20070101
  17. ANAGRELIDE HCL [Suspect]
     Indication: ESSENTIAL THROMBOCYTHAEMIA
     Dosage: 1.75 MG, 2X/DAY:BID
     Route: 048
     Dates: start: 20101028, end: 20110117
  18. ANAGRELIDE HCL [Suspect]
     Dosage: 0.5 MG, 4X/DAY:QID
     Route: 048
     Dates: start: 20080117, end: 20080123
  19. FEXOFENADINE HCL [Concomitant]
     Indication: RHINITIS ALLERGIC
     Dosage: 120 MG, 1X/DAY:QD
     Route: 048
     Dates: start: 20070214

REACTIONS (1)
  - GASTROENTERITIS [None]
